FAERS Safety Report 18270569 (Version 1)
Quarter: 2020Q3

REPORT INFORMATION
  Report Type: Report from Study
  Country: US (occurrence: US)
  Receive Date: 20200915
  Receipt Date: 20200915
  Transmission Date: 20201103
  Serious: Yes (Hospitalization)
  Sender: FDA-Public Use
  Company Number: US-JNJFOC-A-US2020-207383

PATIENT
  Age: 9 Year
  Sex: Male

DRUGS (9)
  1. SILDENAFIL. [Concomitant]
     Active Substance: SILDENAFIL
     Indication: FOCAL DYSCOGNITIVE SEIZURES
     Dosage: 20 MG, TID
     Dates: start: 20191205
  2. DIGOXIN. [Concomitant]
     Active Substance: DIGOXIN
     Indication: CARDIAC FAILURE
     Dosage: 2.5 MG, BID
  3. OXYGEN. [Concomitant]
     Active Substance: OXYGEN
     Indication: SLEEP APNOEA SYNDROME
  4. KEPPRA [Concomitant]
     Active Substance: LEVETIRACETAM
  5. KEPPRA [Concomitant]
     Active Substance: LEVETIRACETAM
     Dosage: 500 MG, QD
     Dates: start: 201910
  6. UPTRAVI [Suspect]
     Active Substance: SELEXIPAG
     Indication: PULMONARY ARTERIAL HYPERTENSION
     Dosage: 200 MCG, BID
     Route: 048
     Dates: start: 20200708
  7. OPSUMIT [Suspect]
     Active Substance: MACITENTAN
     Indication: PULMONARY ARTERIAL HYPERTENSION
     Dosage: 10 MG, QD
     Route: 048
     Dates: start: 20200210
  8. OPSUMIT [Suspect]
     Active Substance: MACITENTAN
     Dosage: 20 MG, QD
     Route: 048
     Dates: start: 20200210, end: 202007
  9. DIGOXIN. [Concomitant]
     Active Substance: DIGOXIN

REACTIONS (8)
  - Aggression [Unknown]
  - Chest discomfort [Unknown]
  - Status epilepticus [Unknown]
  - Cardiac arrest [Unknown]
  - Generalised tonic-clonic seizure [Unknown]
  - Off label use [Unknown]
  - Chest pain [Unknown]
  - Agitation [Unknown]

NARRATIVE: CASE EVENT DATE: 20200709
